FAERS Safety Report 6607016-5 (Version None)
Quarter: 2010Q1

REPORT INFORMATION
  Report Type: 
  Country: None (occurrence: None)
  Receive Date: 20100226
  Receipt Date: 20100218
  Transmission Date: 20100710
  Serious: Yes (Hospitalization)
  Sender: FDA-Public Use
  Company Number: US-AMGEN-QUU393888

PATIENT
  Sex: Female

DRUGS (2)
  1. ENBREL [Suspect]
     Indication: RHEUMATOID ARTHRITIS
     Dates: start: 20041124
  2. ORENCIA [Concomitant]
     Dates: start: 20070101

REACTIONS (3)
  - OEDEMA PERIPHERAL [None]
  - PERIPHERAL NERVE INJURY [None]
  - RENAL IMPAIRMENT [None]
